FAERS Safety Report 25896601 (Version 1)
Quarter: 2025Q4

REPORT INFORMATION
  Report Type: Spontaneous
  Country: RU (occurrence: RU)
  Receive Date: 20251008
  Receipt Date: 20251008
  Transmission Date: 20260118
  Serious: Yes (Other)
  Sender: ROCHE
  Company Number: RU-ROCHE-10000399428

PATIENT
  Sex: Female
  Weight: 85 kg

DRUGS (2)
  1. ATEZOLIZUMAB [Suspect]
     Active Substance: ATEZOLIZUMAB
     Indication: Bladder cancer
     Dosage: ON 08-MAY-2024, 29-MAY-2024, 28-JUN-2024, 03-JAN-2025, 11-FEB-2025, 04-MAR-2025, 25-MAR-2025, 15-APR
     Route: 042
     Dates: start: 20240417
  2. ATEZOLIZUMAB [Suspect]
     Active Substance: ATEZOLIZUMAB
     Indication: Bladder transitional cell carcinoma

REACTIONS (16)
  - Tubulointerstitial nephritis [Unknown]
  - Acute kidney injury [Unknown]
  - Ascites [Unknown]
  - Pleural neoplasm [Unknown]
  - Osteosclerosis [Unknown]
  - Colitis [Unknown]
  - Lung neoplasm [Unknown]
  - Colon cancer [Unknown]
  - Anaemia [Unknown]
  - Left ventricular hypertrophy [Unknown]
  - Aortic arteriosclerosis [Unknown]
  - Metastases to bone [Unknown]
  - Ill-defined disorder [Unknown]
  - Colon neoplasm [Unknown]
  - Post procedural hypothyroidism [Unknown]
  - Fibrin D dimer increased [Unknown]
